FAERS Safety Report 8814709 (Version 1)
Quarter: 2012Q4

REPORT INFORMATION
  Report Type: 
  Country: DK (occurrence: DK)
  Receive Date: 20120928
  Receipt Date: 20120928
  Transmission Date: 20130627
  Serious: Yes (Hospitalization, Other)
  Sender: FDA-Public Use
  Company Number: DK-JNJFOC-20120809070

PATIENT
  Sex: Female

DRUGS (6)
  1. XEPLION [Suspect]
     Indication: BIPOLAR DISORDER
     Route: 030
  2. SEROQUEL [Concomitant]
     Indication: BIPOLAR DISORDER
     Route: 065
  3. SEROQUEL [Concomitant]
     Indication: BIPOLAR DISORDER
     Route: 065
  4. LITHIUM [Concomitant]
     Indication: PRODUCT USED FOR UNKNOWN INDICATION
     Route: 065
  5. LITHIUM [Concomitant]
     Indication: PRODUCT USED FOR UNKNOWN INDICATION
     Route: 065
  6. LITHIUM [Concomitant]
     Indication: PRODUCT USED FOR UNKNOWN INDICATION
     Route: 065

REACTIONS (2)
  - Hospitalisation [Unknown]
  - Vision blurred [Unknown]
